FAERS Safety Report 5820097-1 (Version None)
Quarter: 2008Q3

REPORT INFORMATION
  Report Type: 
  Country: None (occurrence: None)
  Receive Date: 20080724
  Receipt Date: 20080714
  Transmission Date: 20090109
  Serious: Yes (Death, Life-Threatening, Other)
  Sender: FDA-Public Use
  Company Number: GB-JNJFOC-20080703531

PATIENT
  Sex: Female
  Weight: 43 kg

DRUGS (6)
  1. REMICADE [Suspect]
     Indication: RHEUMATOID ARTHRITIS
     Route: 042
  2. METHOTREXATE [Concomitant]
  3. PEDNISOLONE [Concomitant]
  4. ALENDRONATE SODIUM [Concomitant]
  5. CO-PROXAMOL [Concomitant]
  6. CALCICHEW [Concomitant]

REACTIONS (1)
  - DEATH [None]
